FAERS Safety Report 7319628-4 (Version None)
Quarter: 2011Q1

REPORT INFORMATION
  Report Type: 
  Country: None (occurrence: None)
  Receive Date: 20110228
  Receipt Date: 20100621
  Transmission Date: 20110831
  Serious: No
  Sender: FDA-Public Use
  Company Number: A0866304A

PATIENT
  Age: 44 Year
  Sex: Female

DRUGS (6)
  1. HUMALOG [Concomitant]
  2. LAMICTAL [Suspect]
     Indication: BIPOLAR DISORDER
     Dosage: 25MG PER DAY
     Route: 048
     Dates: start: 20100505
  3. LANTUS [Concomitant]
  4. ADVIL [Concomitant]
  5. BUSPIRONE [Concomitant]
  6. PREVACID [Concomitant]

REACTIONS (3)
  - CONFUSIONAL STATE [None]
  - AMNESIA [None]
  - MEMORY IMPAIRMENT [None]
